FAERS Safety Report 11622488 (Version 1)
Quarter: 2015Q4

REPORT INFORMATION
  Report Type: Spontaneous
  Country: US (occurrence: None)
  Receive Date: 20151009
  Receipt Date: 20151009
  Transmission Date: 20160304
  Serious: Yes (Hospitalization)
  Sender: FDA-Public Use
  Company Number: None

PATIENT
  Age: 61 Year
  Sex: Male

DRUGS (3)
  1. ATENOLOL. [Concomitant]
     Active Substance: ATENOLOL
  2. LOSARTAN. [Concomitant]
     Active Substance: LOSARTAN
  3. INTERLEUKIN-2 [Suspect]
     Active Substance: ALDESLEUKIN
     Indication: METASTATIC MALIGNANT MELANOMA
     Dates: start: 20140804, end: 20140808

REACTIONS (6)
  - Arthritis bacterial [None]
  - Oedema peripheral [None]
  - Staphylococcal bacteraemia [None]
  - Blood bilirubin increased [None]
  - Sepsis [None]
  - Drug-induced liver injury [None]

NARRATIVE: CASE EVENT DATE: 20140813
